FAERS Safety Report 9475953 (Version 1)
Quarter: 2013Q3

REPORT INFORMATION
  Report Type: Spontaneous
  Country: US (occurrence: US)
  Receive Date: 20130826
  Receipt Date: 20130826
  Transmission Date: 20140515
  Serious: Yes (Hospitalization)
  Sender: FDA-Public Use
  Company Number: US-BAYER-2013-102460

PATIENT
  Age: 34 Year
  Sex: Female

DRUGS (3)
  1. YAZ [Suspect]
  2. VALTREX [Concomitant]
     Dosage: UNK
     Dates: start: 20080219
  3. ACYCLOVIR [ACICLOVIR] [Concomitant]
     Dosage: UNK
     Dates: start: 20080219

REACTIONS (1)
  - Pulmonary embolism [None]
